FAERS Safety Report 10414175 (Version 3)
Quarter: 2014Q3

REPORT INFORMATION
  Report Type: Spontaneous
  Country: CR (occurrence: CR)
  Receive Date: 20140827
  Receipt Date: 20140915
  Transmission Date: 20150326
  Serious: Yes (Other)
  Sender: FDA-Public Use
  Company Number: PHHY2014CR103639

PATIENT
  Age: 80 Year
  Sex: Female

DRUGS (3)
  1. GLIVEC [Suspect]
     Active Substance: IMATINIB MESYLATE
     Dosage: 400 MG, UNK
     Dates: start: 20131104, end: 20140217
  2. LEVOTHYROXINE [Concomitant]
     Active Substance: LEVOTHYROXINE
     Indication: HYPOTHYROIDISM
     Dosage: 0.1 MG, UNK
  3. GLIVEC [Suspect]
     Active Substance: IMATINIB MESYLATE
     Dosage: 400 MG, UNK

REACTIONS (6)
  - Hypertensive cardiomyopathy [Unknown]
  - Hypertrophic cardiomyopathy [Unknown]
  - Pancytopenia [Unknown]
  - Pulmonary hypertension [Unknown]
  - Tumour marker increased [Unknown]
  - Drug ineffective [Unknown]
